FAERS Safety Report 7157976-1 (Version None)
Quarter: 2010Q4

REPORT INFORMATION
  Report Type: 
  Country: None (occurrence: None)
  Receive Date: 20101214
  Receipt Date: 20101209
  Transmission Date: 20110411
  Serious: Yes (Other)
  Sender: FDA-Public Use
  Company Number: FR-ROXANE LABORATORIES, INC.-2010-RO-01598RO

PATIENT
  Age: 84 Year
  Sex: Female

DRUGS (3)
  1. CYCLOPHOSPHAMIDE [Suspect]
     Indication: NON-HODGKIN'S LYMPHOMA
  2. RITUXIMAB [Suspect]
     Indication: NON-HODGKIN'S LYMPHOMA
  3. FLUDARABINE [Suspect]
     Indication: NON-HODGKIN'S LYMPHOMA

REACTIONS (2)
  - BRUCELLOSIS [None]
  - HISTIOCYTOSIS HAEMATOPHAGIC [None]
